FAERS Safety Report 10181964 (Version 2)
Quarter: 2014Q2

REPORT INFORMATION
  Report Type: Spontaneous
  Country: US (occurrence: US)
  Receive Date: 20140519
  Receipt Date: 20140522
  Transmission Date: 20141212
  Serious: No
  Sender: FDA-Public Use
  Company Number: US-GILEAD-2014-0102740

PATIENT
  Sex: Female

DRUGS (4)
  1. LETAIRIS [Suspect]
     Indication: PRODUCT USED FOR UNKNOWN INDICATION
     Dosage: 5 MG, QD
     Route: 065
     Dates: start: 20140411
  2. LETAIRIS [Suspect]
     Dosage: 2.5 MG, QD
  3. REMODULIN [Concomitant]
  4. ADCIRCA [Concomitant]

REACTIONS (2)
  - Fatigue [Unknown]
  - Swelling [Unknown]
